FAERS Safety Report 8203336-1 (Version None)
Quarter: 2012Q1

REPORT INFORMATION
  Report Type: 
  Country: None (occurrence: None)
  Receive Date: 20120312
  Receipt Date: 20120220
  Transmission Date: 20120608
  Serious: Yes (Other)
  Sender: FDA-Public Use
  Company Number: PHHY2012FR017316

PATIENT
  Sex: Male

DRUGS (5)
  1. ASPIRIN [Concomitant]
     Dosage: 75 MG, UNK
  2. RISPERDAL [Concomitant]
     Dosage: UNK
     Dates: start: 20111011, end: 20111021
  3. MODOPAR [Concomitant]
     Dosage: 125 MG, UNK
  4. CLOZAPINE [Suspect]
     Indication: DEMENTIA WITH LEWY BODIES
     Dosage: 12.5 MG, DAILY
     Dates: start: 20111124, end: 20111125
  5. AMLODIPINE [Concomitant]
     Dosage: 5 MG, UNK

REACTIONS (4)
  - MALAISE [None]
  - BLOOD PRESSURE DECREASED [None]
  - BRADYCARDIA [None]
  - LOSS OF CONSCIOUSNESS [None]
